FAERS Safety Report 24670638 (Version 1)
Quarter: 2024Q4

REPORT INFORMATION
  Report Type: Spontaneous
  Country: JP (occurrence: JP)
  Receive Date: 20241127
  Receipt Date: 20241127
  Transmission Date: 20250115
  Serious: Yes (Death, Hospitalization, Other)
  Sender: ASTELLAS
  Company Number: JP-GILEAD-2024-0695047

PATIENT
  Age: 79 Year
  Sex: Male
  Weight: 67.7 kg

DRUGS (21)
  1. AMBISOME [Suspect]
     Active Substance: AMPHOTERICIN B
     Indication: Fungal infection
     Dosage: 150 MG, QD
     Route: 042
     Dates: start: 20241010, end: 20241028
  2. FEBUXOSTAT [Concomitant]
     Active Substance: FEBUXOSTAT
     Indication: Product used for unknown indication
     Dosage: UNK
     Route: 065
     Dates: start: 20240919, end: 20241011
  3. AMLODIPINE [Concomitant]
     Active Substance: AMLODIPINE BESYLATE
     Indication: Product used for unknown indication
     Dosage: UNK
     Route: 065
     Dates: start: 20240919, end: 20241012
  4. FUROSEMIDE [Concomitant]
     Active Substance: FUROSEMIDE
     Indication: Product used for unknown indication
     Dosage: UNK
     Route: 065
     Dates: start: 20240919, end: 20241029
  5. AMITIZA [Concomitant]
     Active Substance: LUBIPROSTONE
     Indication: Product used for unknown indication
     Dosage: UNK
     Route: 065
     Dates: start: 20240919, end: 20241005
  6. BELSOMRA [Concomitant]
     Active Substance: SUVOREXANT
     Indication: Product used for unknown indication
     Dosage: UNK
     Route: 065
     Dates: start: 20240919, end: 20241018
  7. JANUVIA [Concomitant]
     Active Substance: SITAGLIPTIN PHOSPHATE
     Indication: Product used for unknown indication
     Dosage: UNK
     Route: 065
     Dates: start: 20240920, end: 20241029
  8. LYUMJEV [Concomitant]
     Active Substance: INSULIN LISPRO-AABC
     Indication: Product used for unknown indication
     Dosage: UNK
     Route: 065
     Dates: start: 20240920
  9. ZINC ACETATE [Concomitant]
     Active Substance: ZINC ACETATE
     Indication: Product used for unknown indication
     Dosage: UNK
     Route: 065
     Dates: start: 20240921, end: 20241004
  10. POTASSIUM CHLORIDE [Concomitant]
     Active Substance: POTASSIUM CHLORIDE
     Indication: Product used for unknown indication
     Dosage: UNK
     Route: 065
     Dates: start: 20240924, end: 20240930
  11. SENNOSIDES A AND B [Concomitant]
     Active Substance: SENNOSIDES A AND B
     Indication: Product used for unknown indication
     Dosage: UNK
     Route: 065
     Dates: start: 20240924, end: 20241011
  12. EDOXABAN TOSYLATE [Concomitant]
     Active Substance: EDOXABAN TOSYLATE
     Indication: Product used for unknown indication
     Dosage: UNK
     Route: 065
     Dates: start: 20240924, end: 20241009
  13. FUNGIZONE [Concomitant]
     Active Substance: AMPHOTERICIN B
     Indication: Product used for unknown indication
     Dosage: UNK
     Route: 065
     Dates: start: 20240924, end: 20241029
  14. AMINO ACIDS\DEXTROSE\ELECTROLYTES NOS\VITAMINS [Concomitant]
     Active Substance: AMINO ACIDS\DEXTROSE\ELECTROLYTES NOS\VITAMINS
     Indication: Product used for unknown indication
     Dosage: UNK
     Route: 065
     Dates: start: 20240925, end: 20241029
  15. HUMULIN R [Concomitant]
     Active Substance: INSULIN HUMAN
     Indication: Product used for unknown indication
     Dosage: UNK
     Route: 065
     Dates: start: 20240925, end: 20241021
  16. CYANOCOBALAMIN\PYRIDOXINE HYDROCHLORIDE\THIAMINE [Concomitant]
     Active Substance: CYANOCOBALAMIN\PYRIDOXINE HYDROCHLORIDE\THIAMINE
     Indication: Product used for unknown indication
     Dosage: UNK
     Route: 065
     Dates: start: 20240925, end: 20241029
  17. SOYBEAN OIL [Concomitant]
     Active Substance: SOYBEAN OIL
     Indication: Product used for unknown indication
     Dosage: UNK
     Route: 065
     Dates: start: 20240925, end: 20241029
  18. HYDREA [Concomitant]
     Active Substance: HYDROXYUREA
     Indication: Product used for unknown indication
     Dosage: UNK
     Route: 065
     Dates: start: 20240926, end: 20241026
  19. PIPERACILLIN SODIUM\TAZOBACTAM SODIUM [Concomitant]
     Active Substance: PIPERACILLIN SODIUM\TAZOBACTAM SODIUM
     Indication: Product used for unknown indication
     Dosage: UNK
     Route: 065
     Dates: start: 20241008, end: 20241017
  20. POTASSIUM ASPARTATE [Concomitant]
     Active Substance: POTASSIUM ASPARTATE
     Indication: Product used for unknown indication
     Dosage: UNK
     Route: 065
     Dates: start: 20241017, end: 20241029
  21. MEROPENEM [Concomitant]
     Active Substance: MEROPENEM
     Indication: Product used for unknown indication
     Dosage: UNK
     Route: 065
     Dates: start: 20241026, end: 20241028

REACTIONS (2)
  - Sepsis [Fatal]
  - Hypokalaemia [Recovered/Resolved]

NARRATIVE: CASE EVENT DATE: 20241015
